FAERS Safety Report 26082651 (Version 1)
Quarter: 2025Q4

REPORT INFORMATION
  Report Type: Spontaneous
  Country: CA (occurrence: CA)
  Receive Date: 20251124
  Receipt Date: 20251124
  Transmission Date: 20260118
  Serious: Yes (Other)
  Sender: PFIZER
  Company Number: CA-PFIZER INC-202500208939

PATIENT
  Age: 65 Year
  Sex: Female

DRUGS (2)
  1. IXIFI [Suspect]
     Active Substance: INFLIXIMAB-QBTX
     Indication: Colitis ulcerative
     Dosage: 350 MG, EVERY 4 WEEKS
     Route: 042
     Dates: start: 20250602
  2. IXIFI [Suspect]
     Active Substance: INFLIXIMAB-QBTX
     Dosage: 350 MG, EVERY 4 WEEKS
     Route: 042
     Dates: start: 20250929

REACTIONS (2)
  - Basal cell carcinoma [Unknown]
  - Condition aggravated [Unknown]
